APPROVED DRUG PRODUCT: UTIMOX
Active Ingredient: AMOXICILLIN
Strength: 500MG
Dosage Form/Route: CAPSULE;ORAL
Application: A062107 | Product #002
Applicant: PARKE DAVIS DIV WARNER LAMBERT CO
Approved: Approved Prior to Jan 1, 1982 | RLD: No | RS: No | Type: DISCN